FAERS Safety Report 9510144 (Version 2)
Quarter: 2014Q1

REPORT INFORMATION
  Report Type: Spontaneous
  Country: US (occurrence: US)
  Receive Date: 20130909
  Receipt Date: 20140221
  Transmission Date: 20141002
  Serious: Yes (Other)
  Sender: FDA-Public Use
  Company Number: US-BRISTOL-MYERS SQUIBB COMPANY-18742403

PATIENT
  Age: 40 Year
  Sex: Female
  Weight: 70.75 kg

DRUGS (7)
  1. ABILIFY [Suspect]
     Indication: ANXIETY
  2. SEROQUEL [Concomitant]
  3. XANAX [Concomitant]
  4. LAMOTRIGINE [Concomitant]
  5. LORAZEPAM [Concomitant]
  6. VERAPAMIL [Concomitant]
  7. METHOCARBAMOL [Concomitant]

REACTIONS (9)
  - Cerebrovascular accident [Unknown]
  - Road traffic accident [Unknown]
  - Disability [Unknown]
  - Memory impairment [Unknown]
  - Asthenia [Unknown]
  - Somnambulism [Unknown]
  - Disturbance in attention [Unknown]
  - Insomnia [Unknown]
  - Somnolence [Unknown]
